FAERS Safety Report 9082642 (Version 1)
Quarter: 2013Q1

REPORT INFORMATION
  Report Type: Report from Study
  Country: US (occurrence: US)
  Receive Date: 20130131
  Receipt Date: 20130131
  Transmission Date: 20140127
  Serious: No
  Sender: FDA-Public Use
  Company Number: US-ABBOTT-12P-163-0990317-00

PATIENT
  Age: 63 Year
  Sex: Female

DRUGS (5)
  1. HUMIRA [Suspect]
     Indication: RHEUMATOID ARTHRITIS
     Dates: start: 2005
  2. HUMIRA [Suspect]
  3. XANAX [Concomitant]
     Indication: ANXIETY
  4. LEXAPRO [Concomitant]
     Indication: DEPRESSION
  5. ATENOLOL [Concomitant]
     Indication: BLOOD PRESSURE

REACTIONS (2)
  - Respiratory tract congestion [Not Recovered/Not Resolved]
  - Upper-airway cough syndrome [Not Recovered/Not Resolved]
